FAERS Safety Report 15395925 (Version 1)
Quarter: 2018Q3

REPORT INFORMATION
  Report Type: Spontaneous
  Country: US (occurrence: US)
  Receive Date: 20180912
  Receipt Date: 20180912
  Transmission Date: 20181010
  Serious: Yes (Other)
  Sender: FDA-Public Use
  Company Number: None

PATIENT
  Age: 80 Year
  Sex: Female
  Weight: 11.34 kg

DRUGS (8)
  1. RITUXAN [Suspect]
     Active Substance: RITUXIMAB
     Indication: CHRONIC LYMPHOCYTIC LEUKAEMIA
     Dates: start: 20180521, end: 20180604
  2. ATORVASTATIN [Concomitant]
     Active Substance: ATORVASTATIN
  3. CRANBERRY. [Concomitant]
     Active Substance: CRANBERRY
  4. METANX (METHYL?B12/L METOLATE/B6 PHOS) [Concomitant]
  5. ASPIRIN 81MG [Concomitant]
     Active Substance: ASPIRIN
  6. IBANDRONATE (BONIVA) [Concomitant]
  7. LEVOTHYROXINE. [Concomitant]
     Active Substance: LEVOTHYROXINE
  8. GLUCOSAMINE?CHONDROITIN [Concomitant]
     Active Substance: CHONDROITIN SULFATE (BOVINE)\GLUCOSAMINE SULFATE

REACTIONS (8)
  - Lymphadenopathy [None]
  - Pain [None]
  - Ill-defined disorder [None]
  - Infusion related reaction [None]
  - Body temperature increased [None]
  - Hypersensitivity [None]
  - Neck pain [None]
  - Ear pain [None]

NARRATIVE: CASE EVENT DATE: 20180630
